FAERS Safety Report 19476087 (Version 2)
Quarter: 2021Q3

REPORT INFORMATION
  Report Type: Spontaneous
  Country: US (occurrence: US)
  Receive Date: 20210630
  Receipt Date: 20210914
  Transmission Date: 20211014
  Serious: Yes (Other)
  Sender: FDA-Public Use
  Company Number: US-BAYER-2021-167082

PATIENT
  Age: 51 Year
  Sex: Female
  Weight: 68.48 kg

DRUGS (2)
  1. MIRENA [Suspect]
     Active Substance: LEVONORGESTREL
     Indication: CONTRACEPTION
     Dosage: 20 ?G PER DAY, CONTINUOUSLY
     Route: 015
     Dates: start: 20190216
  2. MIRENA [Suspect]
     Active Substance: LEVONORGESTREL
     Indication: HEAVY MENSTRUAL BLEEDING

REACTIONS (4)
  - Embedded device [Not Recovered/Not Resolved]
  - Procedural haemorrhage [None]
  - Complication of device removal [None]
  - Abdominal pain lower [None]

NARRATIVE: CASE EVENT DATE: 20210415
